FAERS Safety Report 7620767-9 (Version None)
Quarter: 2011Q3

REPORT INFORMATION
  Report Type: 
  Country: None (occurrence: None)
  Receive Date: 20110719
  Receipt Date: 20110705
  Transmission Date: 20111222
  Serious: Yes (Other)
  Sender: FDA-Public Use
  Company Number: US-SANOFI-AVENTIS-2011SA044371

PATIENT
  Age: 69 Year
  Sex: Male
  Weight: 140 kg

DRUGS (8)
  1. ASPIRIN [Concomitant]
     Route: 065
  2. DRONEDARONE HCL [Suspect]
     Indication: ATRIAL FIBRILLATION
     Route: 048
     Dates: start: 20110426
  3. METOPROLOL TARTRATE [Concomitant]
     Route: 065
  4. FUROSEMIDE [Concomitant]
     Route: 065
  5. ATORVASTATIN [Concomitant]
     Route: 065
  6. POTASSIUM CHLORIDE [Concomitant]
     Route: 065
     Dates: end: 20110510
  7. METFORMIN HCL [Concomitant]
     Route: 065
  8. DABIGATRAN [Concomitant]
     Route: 065
     Dates: end: 20110526

REACTIONS (1)
  - CARDIAC FAILURE [None]
